FAERS Safety Report 8343243 (Version 3)
Quarter: 2015Q3

REPORT INFORMATION
  Report Type: Report from Study
  Country: KR (occurrence: KR)
  Receive Date: 20120109
  Receipt Date: 20150921
  Transmission Date: 20151125
  Serious: Yes (Death, Other)
  Sender: FDA-Public Use
  Company Number: KR-JNJFOC-20111212760

PATIENT
  Age: 28 Year
  Sex: Male
  Weight: 52 kg

DRUGS (7)
  1. GRASIN [Concomitant]
     Indication: BONE MARROW FAILURE
     Route: 042
     Dates: start: 20100713, end: 20100730
  2. VANCOMYCIN HYDROCHLORIDE. [Concomitant]
     Active Substance: VANCOMYCIN HYDROCHLORIDE
     Indication: ANTIBIOTIC THERAPY
     Route: 042
     Dates: start: 20100627, end: 20100730
  3. OXIRACETAM [Concomitant]
     Active Substance: OXIRACETAM
     Indication: PROPHYLAXIS
     Route: 042
     Dates: start: 20100704, end: 20100730
  4. DECITABINE. [Suspect]
     Active Substance: DECITABINE
     Indication: MYELODYSPLASTIC SYNDROME
     Route: 042
     Dates: start: 20100708, end: 20100712
  5. VANCOMYCIN HYDROCHLORIDE. [Concomitant]
     Active Substance: VANCOMYCIN HYDROCHLORIDE
     Indication: ENDOCARDITIS
     Route: 042
     Dates: start: 20100627, end: 20100730
  6. SPORANOX [Concomitant]
     Active Substance: ITRACONAZOLE\SODIUM CHLORIDE
     Indication: ANTIFUNGAL PROPHYLAXIS
     Dosage: 2 FREQUENCY
     Route: 048
     Dates: start: 20100708, end: 20100712
  7. CIPROCTAN [Concomitant]
     Indication: PROPHYLAXIS
     Dosage: 2 FREQUENCY
     Route: 048
     Dates: start: 20100708, end: 20100712

REACTIONS (2)
  - Neutropenia [Fatal]
  - Sepsis [Fatal]

NARRATIVE: CASE EVENT DATE: 20100723
